FAERS Safety Report 10524870 (Version 1)
Quarter: 2014Q4

REPORT INFORMATION
  Report Type: Spontaneous
  Country: US (occurrence: US)
  Receive Date: 20141017
  Receipt Date: 20141017
  Transmission Date: 20150528
  Serious: No
  Sender: FDA-Public Use
  Company Number: US-PFIZER INC-2014283607

PATIENT
  Sex: Male

DRUGS (1)
  1. EPLERENONE. [Suspect]
     Active Substance: EPLERENONE
     Dosage: 50 MG, 2X/DAY (25MG TABLETS 2 IN DAY AND 2 IN NIGHT)

REACTIONS (2)
  - Muscle spasms [Unknown]
  - Fluid retention [Unknown]
